FAERS Safety Report 5060954-X (Version None)
Quarter: 2006Q3

REPORT INFORMATION
  Report Type: 
  Country: None (occurrence: None)
  Receive Date: 20060720
  Receipt Date: 20060705
  Transmission Date: 20061208
  Serious: Yes (Other)
  Sender: FDA-Public Use
  Company Number: 2006-BP-07733RO

PATIENT
  Age: 17 Year
  Sex: Male

DRUGS (2)
  1. CYCLOPHOSPHAMIDE [Suspect]
     Indication: SYSTEMIC LUPUS ERYTHEMATOSUS
     Dosage: 1000 MG IV EVERY 6 WEEKS, IV; SINCE AGE 9
     Route: 042
  2. PREDNISONE TAB [Suspect]
     Indication: SYSTEMIC LUPUS ERYTHEMATOSUS
     Dosage: 20 MG DAILY, SINCE AGE 9

REACTIONS (5)
  - GLOMERULONEPHRITIS PROLIFERATIVE [None]
  - METASTASES TO LYMPH NODES [None]
  - METASTATIC RENAL CELL CARCINOMA [None]
  - NEOPLASM RECURRENCE [None]
  - RENAL CELL CARCINOMA STAGE UNSPECIFIED [None]
